FAERS Safety Report 4810379-4 (Version None)
Quarter: 2005Q4

REPORT INFORMATION
  Report Type: 
  Country: None (occurrence: None)
  Receive Date: 20051024
  Receipt Date: 20051007
  Transmission Date: 20060501
  Serious: Yes (Hospitalization)
  Sender: FDA-Public Use
  Company Number: 2005-01980

PATIENT
  Age: 69 Year
  Sex: Male
  Weight: 122 kg

DRUGS (14)
  1. VELCADE [Suspect]
     Indication: MULTIPLE MYELOMA
     Dosage: 1.30 MG/M2, 2/WEEK INTRAVENOUS
     Route: 042
     Dates: end: 20050915
  2. MELPHALAN(MELPHALAN) VIAL [Suspect]
     Indication: MULTIPLE MYELOMA
     Dosage: 9.00 MG/M2, ORAL
     Route: 048
     Dates: start: 20050815, end: 20050818
  3. PREDNISONE [Suspect]
     Indication: MULTIPLE MYELOMA
     Dosage: 60.00 MG/M2, ORAL
     Route: 048
     Dates: start: 20050815, end: 20050818
  4. BISOPROLOL [Concomitant]
  5. ALLOPURINOL [Concomitant]
  6. ZOMETA [Concomitant]
  7. ACYCLOVIR [Concomitant]
  8. OMEPRAZOLE [Concomitant]
  9. MAALOX (MAGNESIUM HYDROXIDE, ALUMINUM HYDROXIDE GEL) [Concomitant]
  10. AMLODIPINE [Concomitant]
  11. BERBERIL (TETRYZOLINE HYDROCHLORIDE, BERBERINE HYDROCHLORIDE) [Concomitant]
  12. DEXA-GENTAMICIN (GENTAMICIN SULFATE, DEXAMETHASONE SODIUM PHOSPHATE) [Concomitant]
  13. VALTREX [Concomitant]
  14. ELACUTAN (UREA) [Concomitant]

REACTIONS (14)
  - ABDOMINAL PAIN [None]
  - CHEST PAIN [None]
  - DEEP VEIN THROMBOSIS [None]
  - DIARRHOEA [None]
  - DRUG HYPERSENSITIVITY [None]
  - DUODENAL POLYP [None]
  - DYSPLASIA [None]
  - ELECTROCARDIOGRAM T WAVE INVERSION [None]
  - ERYSIPELAS [None]
  - FAECES DISCOLOURED [None]
  - GASTROINTESTINAL TRACT ADENOMA [None]
  - GENERAL PHYSICAL HEALTH DETERIORATION [None]
  - PYREXIA [None]
  - THROMBOSIS [None]
